FAERS Safety Report 8854941 (Version 2)
Quarter: 2012Q4

REPORT INFORMATION
  Report Type: 
  Country: JP (occurrence: JP)
  Receive Date: 20121023
  Receipt Date: 20121129
  Transmission Date: 20130627
  Serious: Yes (Other)
  Sender: FDA-Public Use
  Company Number: JP-009507513-1208JPN004562

PATIENT
  Age: 69 Year
  Sex: Male
  Weight: 71 kg

DRUGS (9)
  1. PEGINTRON [Suspect]
     Indication: CHRONIC HEPATITIS C
     Dosage: 1.4 Microgram per kilogram, UNK
     Route: 058
     Dates: start: 20120411
  2. PEGINTRON [Suspect]
     Dosage: 1.5 Microgram per kilogram, UNK
     Route: 058
  3. REBETOL [Suspect]
     Indication: CHRONIC HEPATITIS C
     Dosage: 800 mg, qd
     Route: 048
     Dates: start: 20120411, end: 20120427
  4. REBETOL [Suspect]
     Dosage: 600 mg, qd
     Route: 048
     Dates: start: 20120428, end: 20120524
  5. REBETOL [Suspect]
     Dosage: 400 mg, qd
     Route: 048
     Dates: start: 20120525, end: 20120601
  6. REBETOL [Suspect]
     Dosage: 400 UNK, UNK
     Route: 048
     Dates: start: 20120907
  7. TELAVIC [Suspect]
     Indication: CHRONIC HEPATITIS C
     Dosage: 1500 mg, qd
     Route: 048
     Dates: start: 20120411, end: 20120706
  8. URSO [Concomitant]
     Indication: CHRONIC HEPATITIS C
     Dosage: formulation: POR
     Route: 048
     Dates: start: 200804
  9. ZYLORIC [Concomitant]
     Indication: PROPHYLAXIS
     Dosage: Formulation: POR
     Route: 048
     Dates: start: 20120420

REACTIONS (2)
  - Haemoglobin decreased [Recovered/Resolved]
  - Haemoglobin decreased [Recovered/Resolved]
